FAERS Safety Report 5220684-8 (Version None)
Quarter: 2007Q1

REPORT INFORMATION
  Report Type: 
  Country: None (occurrence: None)
  Receive Date: 20070123
  Receipt Date: 20070110
  Transmission Date: 20070707
  Serious: Yes (Other)
  Sender: FDA-Public Use
  Company Number: NALFI-06-0729

PATIENT
  Age: 29 Year
  Sex: Female

DRUGS (8)
  1. NAROPIN [Suspect]
     Indication: ANALGESIC EFFECT
     Dosage: (10 M1), EPIDURAL
     Route: 008
  2. NAROPIN [Suspect]
     Indication: CATHETER PLACEMENT
     Dosage: (10 M1), EPIDURAL
     Route: 008
  3. NAROPIN [Suspect]
     Indication: ENDOMETRITIS
     Dosage: (10 M1), EPIDURAL
     Route: 008
  4. FENTANYL CITRATE [Suspect]
     Indication: ANALGESIC EFFECT
     Dosage: 0.1 MG VIA EPIDURAL (0.1 MG), EPIDURAL
     Route: 008
  5. FENTANYL CITRATE [Suspect]
     Indication: CATHETER PLACEMENT
     Dosage: 0.1 MG VIA EPIDURAL (0.1 MG), EPIDURAL
     Route: 008
  6. FENTANYL CITRATE [Suspect]
     Indication: ENDOMETRITIS
     Dosage: 0.1 MG VIA EPIDURAL (0.1 MG), EPIDURAL
     Route: 008
  7. LIDOCAINE WITH EPINEPHRINE (OCTOCAINE WITH EPINEPHRINE) [Concomitant]
  8. KEFALEXINE (ANTIBIOTICS) [Concomitant]

REACTIONS (4)
  - ANAESTHETIC COMPLICATION [None]
  - DEAFNESS NEUROSENSORY [None]
  - ENDOMETRITIS [None]
  - HEADACHE [None]
